FAERS Safety Report 5080802-1 (Version None)
Quarter: 2006Q3

REPORT INFORMATION
  Report Type: 
  Country: None (occurrence: None)
  Receive Date: 20060809
  Receipt Date: 20060803
  Transmission Date: 20061208
  Serious: Yes (Hospitalization, Other)
  Sender: FDA-Public Use
  Company Number: FRWYE508403AUG06

PATIENT
  Age: 88 Year
  Sex: Female

DRUGS (3)
  1. EFFEXOR XR [Suspect]
     Dosage: 37.5 MG 1X PER 1 DAY ORAL
     Route: 048
  2. EXELON [Suspect]
     Indication: DEMENTIA ALZHEIMER'S TYPE
     Dosage: 6 MG 2X PER 1 DAY ORAL
     Route: 048
     Dates: end: 20060524
  3. HYZAAR [Suspect]
     Indication: HYPERTENSION
     Dosage: 50 MG 1X PER 1 DAY ORAL
     Route: 048

REACTIONS (3)
  - CHOLINERGIC SYNDROME [None]
  - TREMOR [None]
  - VERTIGO [None]
